FAERS Safety Report 8072990-X (Version None)
Quarter: 2012Q1

REPORT INFORMATION
  Report Type: 
  Country: None (occurrence: None)
  Receive Date: 20120126
  Receipt Date: 20120118
  Transmission Date: 20120608
  Serious: Yes (Hospitalization, Other)
  Sender: FDA-Public Use
  Company Number: US-ROXANE LABORATORIES, INC.-2012-RO-00490RO

PATIENT
  Age: 37 Year
  Sex: Male

DRUGS (8)
  1. ZIPRASIDONE HYDROCHLORIDE [Suspect]
     Indication: MUSCLE TWITCHING
     Dosage: 10 MG
     Route: 030
  2. PROPOFOL [Suspect]
  3. MIDAZOLAM [Suspect]
     Indication: MUSCLE TWITCHING
     Dosage: 5 MG
     Route: 030
  4. ROCURONIUM BROMIDE [Suspect]
  5. METHADONE HCL [Suspect]
  6. DIPHENHYDRAMINE HCL [Suspect]
     Dosage: 50 MG
     Route: 030
  7. ETOMIDATE [Suspect]
     Route: 042
  8. LORAZEPAM [Suspect]
     Indication: MUSCLE TWITCHING
     Route: 030

REACTIONS (5)
  - DELIRIUM [None]
  - PNEUMONIA ASPIRATION [None]
  - RHABDOMYOLYSIS [None]
  - ALTERED STATE OF CONSCIOUSNESS [None]
  - AGITATION [None]
